FAERS Safety Report 6644006-0 (Version None)
Quarter: 2010Q1

REPORT INFORMATION
  Report Type: 
  Country: None (occurrence: None)
  Receive Date: 20100322
  Receipt Date: 20100309
  Transmission Date: 20100710
  Serious: No
  Sender: FDA-Public Use
  Company Number: DE-ELI_LILLY_AND_COMPANY-DE201003002987

PATIENT
  Age: 42 Year
  Sex: Female

DRUGS (1)
  1. ZYPREXA [Suspect]
     Indication: SCHIZOPHRENIA, PARANOID TYPE
     Dosage: 10 MG, UNK
     Route: 048

REACTIONS (2)
  - TRANSAMINASES INCREASED [None]
  - WHITE BLOOD CELL COUNT DECREASED [None]
